FAERS Safety Report 24318890 (Version 3)
Quarter: 2025Q3

REPORT INFORMATION
  Report Type: Report from Study
  Country: US (occurrence: US)
  Receive Date: 20240913
  Receipt Date: 20250816
  Transmission Date: 20251020
  Serious: No
  Sender: ALEXION PHARMACEUTICALS
  Company Number: US-AstraZeneca-CH-00700512A

PATIENT
  Age: 56 Year
  Sex: Female
  Weight: 75.283 kg

DRUGS (2)
  1. ULTOMIRIS [Suspect]
     Active Substance: RAVULIZUMAB-CWVZ
  2. ULTOMIRIS [Suspect]
     Active Substance: RAVULIZUMAB-CWVZ

REACTIONS (4)
  - Hot flush [Recovered/Resolved]
  - Rhinorrhoea [Recovered/Resolved]
  - Back pain [Unknown]
  - Dizziness [Recovered/Resolved]

NARRATIVE: CASE EVENT DATE: 20240717
